FAERS Safety Report 8365131-2 (Version None)
Quarter: 2012Q2

REPORT INFORMATION
  Report Type: 
  Country: None (occurrence: None)
  Receive Date: 20120516
  Receipt Date: 20120514
  Transmission Date: 20120825
  Serious: Yes (Hospitalization)
  Sender: FDA-Public Use
  Company Number: JP-ROXANE LABORATORIES, INC.-2012-RO-01234RO

PATIENT
  Age: 25 Year
  Sex: Female

DRUGS (1)
  1. RISPERIDONE [Suspect]
     Indication: SCHIZOPHRENIA
     Dosage: 3 MG
     Dates: start: 20100101

REACTIONS (2)
  - JOINT DISLOCATION [None]
  - DYSTONIA [None]
